FAERS Safety Report 7341926-9 (Version None)
Quarter: 2011Q1

REPORT INFORMATION
  Report Type: 
  Country: None (occurrence: None)
  Receive Date: 20110309
  Receipt Date: 20110211
  Transmission Date: 20110831
  Serious: No
  Sender: FDA-Public Use
  Company Number: US-B.I. PHARMACEUTICALS,INC./RIDGEFIELD-2011-BP-05556BP

PATIENT
  Sex: Female

DRUGS (10)
  1. METHOTREXATE [Concomitant]
     Indication: SYSTEMIC LUPUS ERYTHEMATOSUS
     Dosage: 15MG Q WEEK
     Route: 048
  2. ZOLOFT [Concomitant]
     Indication: DEPRESSION
     Dosage: 50 MG
     Route: 048
  3. FOLIC ACID [Concomitant]
     Indication: PROPHYLAXIS
     Dosage: 3 MG
     Route: 048
  4. PREMARIN [Concomitant]
     Indication: DEPRESSION
     Dosage: 0.3 MG
     Route: 048
  5. PREDNISONE [Concomitant]
     Indication: SYSTEMIC LUPUS ERYTHEMATOSUS
     Dosage: 5 MG
     Route: 048
  6. SYNTHROID [Concomitant]
     Indication: HYPOTHYROIDISM
     Dosage: 50 MG
     Route: 048
  7. METOPROLOL [Concomitant]
     Indication: DEPRESSION
     Dosage: 100 MG
     Route: 048
  8. ZANTAC [Concomitant]
     Indication: PROPHYLAXIS
     Route: 048
  9. PRADAXA [Suspect]
     Indication: ATRIAL FIBRILLATION
     Dosage: 300 MG
     Route: 048
     Dates: start: 20110210
  10. LIOTHYRONINE SODIUM [Concomitant]
     Indication: HYPOTHYROIDISM
     Route: 048

REACTIONS (1)
  - OESOPHAGEAL PAIN [None]
